FAERS Safety Report 8365875-2 (Version None)
Quarter: 2012Q2

REPORT INFORMATION
  Report Type: 
  Country: None (occurrence: None)
  Receive Date: 20120515
  Receipt Date: 20120507
  Transmission Date: 20120825
  Serious: Yes (Life-Threatening)
  Sender: FDA-Public Use
  Company Number: 2004JP001953

PATIENT
  Age: 51 Year
  Sex: Male

DRUGS (7)
  1. PREDNISOLONE [Concomitant]
  2. BUSULFAN [Concomitant]
  3. PROGRAF [Suspect]
     Indication: PROPHYLAXIS AGAINST GRAFT VERSUS HOST DISEASE
     Dosage: 0.03 MG/KG, CONTINUOUS, IV DRIP
     Route: 041
  4. PROGRAF [Suspect]
     Indication: BONE MARROW TRANSPLANT
     Dosage: 0.03 MG/KG, CONTINUOUS, IV DRIP
     Route: 041
  5. CYCLOPHOSPHAMIDE [Concomitant]
  6. PROGRAF [Suspect]
     Indication: PROPHYLAXIS AGAINST GRAFT VERSUS HOST DISEASE
     Dosage: 0.03 MG/KG, /D, ORAL
     Route: 048
  7. PROGRAF [Suspect]
     Indication: BONE MARROW TRANSPLANT
     Dosage: 0.03 MG/KG, /D, ORAL
     Route: 048

REACTIONS (1)
  - POST TRANSPLANT DISTAL LIMB SYNDROME [None]
